FAERS Safety Report 5957271-X (Version None)
Quarter: 2008Q4

REPORT INFORMATION
  Report Type: 
  Country: None (occurrence: None)
  Receive Date: 20081118
  Receipt Date: 20081117
  Transmission Date: 20090506
  Serious: Yes (Life-Threatening, Hospitalization, Other)
  Sender: FDA-Public Use
  Company Number: JP-B.I. PHARMACEUTICALS,INC./RIDGEFIELD-2008-BP-07382NB

PATIENT
  Sex: Male
  Weight: 63.5 kg

DRUGS (2)
  1. MICARDIS [Suspect]
     Indication: HYPERTENSION
     Dosage: 20MG
     Route: 048
     Dates: start: 20061005, end: 20070417
  2. GLUFAST [Concomitant]
     Dosage: 3 DF
     Route: 048
     Dates: start: 20061102, end: 20070417

REACTIONS (1)
  - PANCREATIC CARCINOMA [None]
